FAERS Safety Report 9226235 (Version 1)
Quarter: 2013Q2

REPORT INFORMATION
  Report Type: Spontaneous
  Country: US (occurrence: US)
  Receive Date: 20130411
  Receipt Date: 20130411
  Transmission Date: 20140414
  Serious: Yes (Other)
  Sender: FDA-Public Use
  Company Number: US-B.I. PHARMACEUTICALS,INC./RIDGEFIELD-2013-BI-09281BP

PATIENT
  Sex: Male
  Weight: 72.57 kg

DRUGS (9)
  1. PRADAXA [Suspect]
     Indication: ATRIAL FIBRILLATION
  2. XARELTO [Suspect]
     Indication: ATRIAL FIBRILLATION
     Dosage: 20 MG
     Route: 048
     Dates: start: 20121002, end: 20121014
  3. XARELTO [Suspect]
     Indication: CEREBROVASCULAR ACCIDENT PROPHYLAXIS
  4. UROCIT K [Concomitant]
     Indication: NEPHROLITHIASIS
     Dosage: 10400 MG
     Route: 048
  5. SOTALOL [Concomitant]
     Indication: ATRIAL FIBRILLATION
     Dosage: 240 MG
     Route: 048
  6. PRAVASTATIN [Concomitant]
     Route: 048
  7. HCTZ [Concomitant]
     Route: 048
  8. LISINOPRIL [Concomitant]
     Indication: ATRIAL FIBRILLATION
     Route: 048
  9. DIGOXIN [Concomitant]
     Indication: ATRIAL FIBRILLATION
     Route: 048

REACTIONS (5)
  - Pharyngeal oedema [Not Recovered/Not Resolved]
  - Laryngeal ulceration [Recovered/Resolved]
  - Oropharyngeal pain [Not Recovered/Not Resolved]
  - Paraesthesia oral [Not Recovered/Not Resolved]
  - Glossodynia [Not Recovered/Not Resolved]
